FAERS Safety Report 22168014 (Version 3)
Quarter: 2023Q2

REPORT INFORMATION
  Report Type: Spontaneous
  Country: US (occurrence: US)
  Receive Date: 20230403
  Receipt Date: 20230413
  Transmission Date: 20230721
  Serious: No
  Sender: FDA-Public Use
  Company Number: US-BIOGEN-2023BI01196914

PATIENT
  Sex: Female

DRUGS (11)
  1. TECFIDERA [Suspect]
     Active Substance: DIMETHYL FUMARATE
     Indication: Relapsing multiple sclerosis
     Dosage: MAINTENANCE DOSE. 1 IN MORNING AND 1 IN EVENING.
     Route: 050
  2. TECFIDERA [Suspect]
     Active Substance: DIMETHYL FUMARATE
     Dosage: STARTING DOSE
     Route: 050
     Dates: start: 20140725
  3. TYLENOL [Concomitant]
     Active Substance: ACETAMINOPHEN
     Route: 050
  4. NORVASC [Concomitant]
     Active Substance: AMLODIPINE BESYLATE
     Dosage: IN MORNING
     Route: 050
     Dates: start: 20230206
  5. ASPIRIN [Concomitant]
     Active Substance: ASPIRIN
     Dosage: DAILY
     Route: 050
  6. LIORESAL [Concomitant]
     Active Substance: BACLOFEN
     Dosage: 1 IN MORNING AND 1 IN EVENING
     Route: 050
     Dates: start: 20230214
  7. VITAMIN D3 [Concomitant]
     Active Substance: CHOLECALCIFEROL
     Route: 050
     Dates: start: 20190905
  8. CELEXA [Concomitant]
     Active Substance: CITALOPRAM HYDROBROMIDE
     Dosage: IN MORNING
     Route: 050
     Dates: start: 20221116
  9. CYANOCOBALAMIN [Concomitant]
     Active Substance: CYANOCOBALAMIN
     Dosage: DAILY
     Route: 050
  10. HYZAAR [Concomitant]
     Active Substance: HYDROCHLOROTHIAZIDE\LOSARTAN POTASSIUM
     Dosage: 100-25MG, IN MORNING
     Route: 050
     Dates: start: 20230206
  11. KLOR-CON [Concomitant]
     Active Substance: POTASSIUM CHLORIDE
     Dosage: 1 IN MORNING AND 1 IN EVENING
     Route: 050
     Dates: start: 20220503

REACTIONS (5)
  - Dizziness [Unknown]
  - Abdominal distension [Unknown]
  - Flatulence [Unknown]
  - Neck pain [Unknown]
  - Nausea [Unknown]
